FAERS Safety Report 5089036-8 (Version None)
Quarter: 2006Q3

REPORT INFORMATION
  Report Type: 
  Country: None (occurrence: None)
  Receive Date: 20060825
  Receipt Date: 20060815
  Transmission Date: 20061208
  Serious: Yes (Hospitalization)
  Sender: FDA-Public Use
  Company Number: 2006SE04402

PATIENT
  Age: 12230 Day
  Sex: Male
  Weight: 102 kg

DRUGS (6)
  1. SEROQUEL [Suspect]
     Indication: MENTAL DISORDER
     Route: 048
     Dates: start: 20051003, end: 20051113
  2. SEROQUEL [Suspect]
     Route: 048
     Dates: start: 20051114, end: 20060108
  3. SEROQUEL [Suspect]
     Route: 048
     Dates: start: 20060109, end: 20060528
  4. SEROQUEL [Suspect]
     Route: 048
     Dates: start: 20060529, end: 20060611
  5. SEROQUEL [Suspect]
     Route: 048
     Dates: start: 20060612, end: 20060802
  6. AMITRIPTYLIN [Concomitant]
     Indication: DEPRESSION
     Route: 048
     Dates: start: 20060530

REACTIONS (1)
  - SCHIZOPHRENIA, PARANOID TYPE [None]
